FAERS Safety Report 9087962 (Version 1)
Quarter: 2013Q1

REPORT INFORMATION
  Report Type: Spontaneous
  Country: US (occurrence: US)
  Receive Date: 20130201
  Receipt Date: 20130201
  Transmission Date: 20140127
  Serious: No
  Sender: FDA-Public Use
  Company Number: US-ABBOTT-12P-163-0928178-00

PATIENT
  Sex: 0

DRUGS (8)
  1. HUMIRA [Suspect]
     Indication: PRODUCT USED FOR UNKNOWN INDICATION
     Dates: start: 201102
  2. ASACOL HD [Concomitant]
  3. BENTYL [Concomitant]
     Dosage: 3X^S DAILY
  4. TRAMADOL [Concomitant]
     Dosage: AS NEEDED
  5. PREVACID [Concomitant]
  6. ZOFRAN [Concomitant]
  7. ALLEGRA [Concomitant]
  8. B-12 INJECTIONS [Concomitant]
     Dosage: MONTHLY

REACTIONS (6)
  - Weight increased [Unknown]
  - Pruritus [Unknown]
  - Weight decreased [Unknown]
  - Condition aggravated [Unknown]
  - Eczema [Unknown]
  - Dry skin [Unknown]
